FAERS Safety Report 12334611 (Version 1)
Quarter: 2016Q2

REPORT INFORMATION
  Report Type: Not Available
  Country: None (occurrence: US)
  Receive Date: 20160504
  Receipt Date: 20160504
  Transmission Date: 20160815
  Serious: No
  Sender: FDA-Public Use
  Company Number: US-AKORN-17595

PATIENT
  Age: 80 Year
  Sex: Male

DRUGS (1)
  1. LATANOPROST OPHTHALMIC SOLUTION [Suspect]
     Active Substance: LATANOPROST

REACTIONS (4)
  - Drug ineffective [None]
  - Body height decreased [None]
  - Intraocular pressure test [None]
  - Stent placement [None]
